FAERS Safety Report 9932989 (Version 2)
Quarter: 2014Q1

REPORT INFORMATION
  Report Type: Spontaneous
  Country: US (occurrence: US)
  Receive Date: 20140228
  Receipt Date: 20140228
  Transmission Date: 20141002
  Serious: No
  Sender: FDA-Public Use
  Company Number: US-ABBVIE-13P-163-1117540-00

PATIENT
  Age: 44 Year
  Sex: Male
  Weight: 81.72 kg

DRUGS (5)
  1. ANDROGEL [Suspect]
     Indication: BLOOD TESTOSTERONE DECREASED
     Dosage: 2 PACKETS DAILY
     Dates: start: 201204, end: 201207
  2. WELLBUTRIN [Concomitant]
     Indication: DEPRESSION
  3. CELEXA [Concomitant]
     Indication: ANXIETY
  4. LIPITOR [Concomitant]
     Indication: BLOOD CHOLESTEROL INCREASED
  5. BUSPAR [Concomitant]
     Indication: ANXIETY

REACTIONS (1)
  - Anxiety [Recovered/Resolved]
